FAERS Safety Report 10258380 (Version 2)
Quarter: 2014Q2

REPORT INFORMATION
  Report Type: Spontaneous
  Country: CA (occurrence: CA)
  Receive Date: 20140625
  Receipt Date: 20140625
  Transmission Date: 20141212
  Serious: Yes (Other)
  Sender: FDA-Public Use
  Company Number: CA-GILEAD-2013-0090011

PATIENT
  Age: 79 Year
  Sex: Female

DRUGS (9)
  1. AMBRISENTAN [Suspect]
     Indication: PULMONARY ARTERIAL HYPERTENSION
     Dosage: 10 MG, QD
     Route: 065
     Dates: start: 20090724
  2. ADCIRCA [Suspect]
     Indication: PRODUCT USED FOR UNKNOWN INDICATION
     Route: 065
     Dates: start: 20131115
  3. ADALAT [Concomitant]
  4. COUMADIN                           /00014802/ [Concomitant]
  5. PANTOLOC                           /01263204/ [Concomitant]
  6. ASA [Concomitant]
  7. VITAMIN D NOS [Concomitant]
  8. IRON [Concomitant]
  9. SIMVASTATIN [Concomitant]

REACTIONS (4)
  - Pulmonary fibrosis [Not Recovered/Not Resolved]
  - Diarrhoea [Not Recovered/Not Resolved]
  - Dyspnoea [Not Recovered/Not Resolved]
  - Fatigue [Not Recovered/Not Resolved]
